FAERS Safety Report 9026349 (Version 1)
Quarter: 2012Q4

REPORT INFORMATION
  Report Type: Spontaneous
  Country: US (occurrence: None)
  Receive Date: 20121213
  Receipt Date: 20121213
  Transmission Date: 20130627
  Serious: Yes (Hospitalization)
  Sender: FDA-Public Use
  Company Number: None

PATIENT
  Age: 70 Year
  Sex: Male

DRUGS (1)
  1. WARFARIN [Suspect]
     Dosage: 2.5 MG PO DAILY
     Route: 048

REACTIONS (3)
  - Nausea [None]
  - Dizziness [None]
  - Gastrointestinal haemorrhage [None]
